FAERS Safety Report 12532149 (Version 1)
Quarter: 2016Q3

REPORT INFORMATION
  Report Type: Spontaneous
  Country: US (occurrence: US)
  Receive Date: 20160706
  Receipt Date: 20160706
  Transmission Date: 20161109
  Serious: Yes (Other)
  Sender: FDA-Public Use
  Company Number: US-BRISTOL-MYERS SQUIBB COMPANY-BMS-2016-052376

PATIENT
  Age: 59 Year
  Sex: Female
  Weight: 129.3 kg

DRUGS (1)
  1. COUMADIN [Suspect]
     Active Substance: WARFARIN SODIUM
     Indication: COAGULATION FACTOR V LEVEL ABNORMAL
     Dosage: 5 MG, UNK
     Route: 065
     Dates: start: 2000

REACTIONS (6)
  - Product use issue [Unknown]
  - International normalised ratio abnormal [Unknown]
  - Drug ineffective [Unknown]
  - Blood viscosity increased [Unknown]
  - Surgery [Unknown]
  - Weight increased [Unknown]

NARRATIVE: CASE EVENT DATE: 20160412
